FAERS Safety Report 8785235 (Version 2)
Quarter: 2012Q4

REPORT INFORMATION
  Report Type: 
  Country: IL (occurrence: IL)
  Receive Date: 20120914
  Receipt Date: 20121012
  Transmission Date: 20130627
  Serious: Yes (Life-Threatening, Hospitalization, Other)
  Sender: FDA-Public Use
  Company Number: IL-B.I. PHARMACEUTICALS,INC./RIDGEFIELD-2012-AP-00749RI

PATIENT
  Age: 73 Year
  Sex: Male
  Weight: 81 kg

DRUGS (5)
  1. PRADAXA [Suspect]
     Indication: ATRIAL FIBRILLATION
     Dosage: 300 mg
     Route: 048
     Dates: start: 20120610, end: 20120825
  2. VERAPAMIL [Suspect]
     Dosage: 240 mg
     Route: 048
     Dates: end: 20120827
  3. ASPIRIN [Concomitant]
     Dosage: 75 mg
  4. LIPITOR [Concomitant]
     Indication: HYPERCHOLESTEROLAEMIA
     Dosage: 20 mg
     Route: 048
  5. OMEPRAZOLE [Concomitant]
     Dosage: 20 mg

REACTIONS (21)
  - Renal failure acute [Recovered/Resolved]
  - Diarrhoea [Recovered/Resolved]
  - Vomiting [Recovered/Resolved]
  - Hyperkalaemia [Recovered/Resolved]
  - Urinary retention [Not Recovered/Not Resolved]
  - Hepatic enzyme increased [Recovered/Resolved]
  - Thrombocytopenia [Recovered/Resolved]
  - Hyponatraemia [Recovered/Resolved]
  - Toxicity to various agents [Recovered/Resolved]
  - Leukocytosis [Recovered/Resolved]
  - Asthenia [Unknown]
  - Coagulation time prolonged [Recovered/Resolved]
  - Drug interaction [Unknown]
  - Aspartate aminotransferase increased [None]
  - Alanine aminotransferase increased [None]
  - International normalised ratio increased [None]
  - Gamma-glutamyltransferase increased [None]
  - Haemodialysis [None]
  - Electrocardiogram T wave inversion [None]
  - Metabolic disorder [None]
  - Vascular calcification [None]
